FAERS Safety Report 21118876 (Version 2)
Quarter: 2022Q3

REPORT INFORMATION
  Report Type: Other
  Country: CN (occurrence: None)
  Receive Date: 20220722
  Receipt Date: 20220804
  Transmission Date: 20221027
  Serious: Yes (Hospitalization, Other)
  Sender: FDA-Public Use
  Company Number: CN-ROCHE-2521827

PATIENT
  Age: 52 Year
  Sex: Female
  Weight: 50 kg

DRUGS (1)
  1. AVASTIN [Suspect]
     Active Substance: BEVACIZUMAB
     Indication: Colon cancer
     Dosage: FORM OF ADMIN: 100 MG INJECTION
     Route: 041
     Dates: start: 20161011

REACTIONS (14)
  - Tumour thrombosis [Not Recovered/Not Resolved]
  - Discomfort [Unknown]
  - Blood pressure increased [Unknown]
  - Skin exfoliation [Unknown]
  - Skin discolouration [Unknown]
  - Hypertension [Unknown]
  - Lipids increased [Unknown]
  - Blood cholesterol increased [Unknown]
  - Blood uric acid increased [Unknown]
  - Hepatic mass [Not Recovered/Not Resolved]
  - Syncope [Unknown]
  - Fall [Unknown]
  - Dyspnoea [Unknown]
  - Drug resistance [Unknown]

NARRATIVE: CASE EVENT DATE: 20220303
